FAERS Safety Report 7061204-5 (Version None)
Quarter: 2010Q4

REPORT INFORMATION
  Report Type: 
  Country: None (occurrence: None)
  Receive Date: 20101026
  Receipt Date: 20101014
  Transmission Date: 20110411
  Serious: Yes (Other)
  Sender: FDA-Public Use
  Company Number: US-BAYER-201037172NA

PATIENT

DRUGS (1)
  1. ULTRAVIST 150 [Suspect]
     Indication: PRODUCT USED FOR UNKNOWN INDICATION

REACTIONS (1)
  - ANAPHYLACTIC REACTION [None]
